FAERS Safety Report 4615331-X (Version None)
Quarter: 2005Q1

REPORT INFORMATION
  Report Type: 
  Country: None (occurrence: None)
  Receive Date: 20050317
  Receipt Date: 20050308
  Transmission Date: 20050727
  Serious: Yes (Other)
  Sender: FDA-Public Use
  Company Number: 213027

PATIENT
  Age: 62 Year
  Sex: Male

DRUGS (1)
  1. ACTIVASE [Suspect]
     Indication: CEREBROVASCULAR ACCIDENT
     Dosage: 67 MG, SINGLE, INTRAVENOUS
     Route: 042
     Dates: start: 20030923, end: 20030923

REACTIONS (1)
  - BASAL GANGLION DEGENERATION [None]
